FAERS Safety Report 4782591-4 (Version None)
Quarter: 2005Q3

REPORT INFORMATION
  Report Type: 
  Country: None (occurrence: None)
  Receive Date: 20050929
  Receipt Date: 20050922
  Transmission Date: 20060218
  Serious: Yes (Other)
  Sender: FDA-Public Use
  Company Number: 2005UW14232

PATIENT
  Age: 15 Year
  Sex: Male

DRUGS (11)
  1. SEROQUEL [Suspect]
  2. HALDOL [Suspect]
     Route: 007
  3. ATIVAN [Concomitant]
  4. BENADRYL [Concomitant]
  5. BUDESONIDE [Concomitant]
  6. CEFOTAXIME [Concomitant]
  7. CHLORAL HYDRATE [Concomitant]
  8. ENOXAPARIN SODIUM [Concomitant]
  9. MELATONIN [Concomitant]
  10. PANTOPRAZOLE [Concomitant]
  11. ALBUTEROL SULFATE HFA [Concomitant]

REACTIONS (7)
  - BLOOD CREATINE PHOSPHOKINASE INCREASED [None]
  - BODY TEMPERATURE INCREASED [None]
  - HYPERHIDROSIS [None]
  - LIVER FUNCTION TEST ABNORMAL [None]
  - MUSCLE RIGIDITY [None]
  - NEUROLEPTIC MALIGNANT SYNDROME [None]
  - TREMOR [None]
